FAERS Safety Report 18558143 (Version 1)
Quarter: 2020Q4

REPORT INFORMATION
  Report Type: Spontaneous
  Country: US (occurrence: US)
  Receive Date: 20201005
  Receipt Date: 20201005
  Transmission Date: 20210114
  Serious: No
  Sender: FDA-Public Use
  Company Number: None

PATIENT
  Age: 5 Decade
  Sex: Female

DRUGS (4)
  1. LOPINAVIR [Suspect]
     Active Substance: LOPINAVIR
     Indication: COVID-19
     Dosage: ?          OTHER DOSE:200/50 MG;?
     Route: 048
     Dates: start: 2020, end: 2020
  2. RITONAVIR. [Suspect]
     Active Substance: RITONAVIR
     Indication: COVID-19
     Dosage: DOSE: 200/50 MG
     Route: 048
     Dates: start: 2020, end: 2020
  3. UMIFENOVIR. [Suspect]
     Active Substance: UMIFENOVIR
     Indication: COVID-19
     Route: 048
     Dates: start: 2020
  4. CEFUROXIME. [Suspect]
     Active Substance: CEFUROXIME
     Indication: COVID-19
     Route: 042
     Dates: start: 2020

REACTIONS (1)
  - Intentional product use issue [None]
